FAERS Safety Report 21290359 (Version 1)
Quarter: 2022Q3

REPORT INFORMATION
  Report Type: Spontaneous
  Country: US (occurrence: US)
  Receive Date: 20220902
  Receipt Date: 20220902
  Transmission Date: 20221026
  Serious: Yes (Other)
  Sender: FDA-Public Use
  Company Number: US-HORIZON THERAPEUTICS-HZN-2022-006651

PATIENT

DRUGS (4)
  1. RAYOS [Suspect]
     Active Substance: PREDNISONE
     Indication: Prophylaxis against transplant rejection
     Route: 065
  2. TACROLIMUS [Concomitant]
     Active Substance: TACROLIMUS
     Indication: Prophylaxis against transplant rejection
     Route: 065
  3. MYCOPHENOLIC ACID [Concomitant]
     Active Substance: MYCOPHENOLIC ACID
     Indication: Prophylaxis against transplant rejection
     Route: 065
  4. LEFLUNOMIDE [Concomitant]
     Active Substance: LEFLUNOMIDE
     Indication: Prophylaxis against transplant rejection
     Route: 065

REACTIONS (5)
  - Polyomavirus-associated nephropathy [Unknown]
  - Polyomavirus viraemia [Unknown]
  - Acute kidney injury [Unknown]
  - Bladder transitional cell carcinoma [Unknown]
  - BK polyomavirus test positive [Unknown]
